FAERS Safety Report 7103612-X (Version None)
Quarter: 2010Q4

REPORT INFORMATION
  Report Type: 
  Country: None (occurrence: None)
  Receive Date: 20101115
  Receipt Date: 20101110
  Transmission Date: 20110411
  Serious: Yes (Death)
  Sender: FDA-Public Use
  Company Number: US-CELGENEUS-163-21880-10092448

PATIENT
  Sex: Female

DRUGS (6)
  1. REVLIMID [Suspect]
     Indication: MULTIPLE MYELOMA
     Route: 048
     Dates: start: 20100903, end: 20100901
  2. AMIODARONE HCL [Concomitant]
     Route: 065
  3. COUMADIN [Concomitant]
     Route: 065
  4. CIPRO [Concomitant]
     Route: 065
  5. LASIX [Concomitant]
     Route: 048
  6. AMITIZA [Concomitant]
     Route: 065

REACTIONS (1)
  - MULTIPLE MYELOMA [None]
